FAERS Safety Report 11118895 (Version 2)
Quarter: 2015Q2

REPORT INFORMATION
  Report Type: Spontaneous
  Country: US (occurrence: US)
  Receive Date: 20150518
  Receipt Date: 20150616
  Transmission Date: 20150821
  Serious: Yes (Other)
  Sender: FDA-Public Use
  Company Number: US-ASTRAZENECA-2015SE36573

PATIENT
  Age: 665 Month
  Sex: Female
  Weight: 51.3 kg

DRUGS (11)
  1. LYNPARZA [Suspect]
     Active Substance: OLAPARIB
     Indication: OVARIAN CANCER
     Route: 048
     Dates: start: 20150310
  2. LYNPARZA [Suspect]
     Active Substance: OLAPARIB
     Indication: OVARIAN CANCER
     Route: 048
  3. LYNPARZA [Suspect]
     Active Substance: OLAPARIB
     Indication: OVARIAN CANCER
     Dosage: 50 MG, TAKE 8 CAPSULE TWO TIMES A DAY
     Route: 048
     Dates: start: 20150407
  4. CLONAZEPAM. [Concomitant]
     Active Substance: CLONAZEPAM
     Route: 048
     Dates: start: 20100608
  5. WARFARIN [Concomitant]
     Active Substance: WARFARIN
     Dosage: TAKE TWO TABLET DAILY FOR 5 DAYS AND 3 TABLET FOR 2 DAYS
     Route: 048
  6. MAGNESIUM OXIDE. [Concomitant]
     Active Substance: MAGNESIUM OXIDE
     Route: 048
     Dates: start: 20150519
  7. MIRTAZAPINE. [Concomitant]
     Active Substance: MIRTAZAPINE
     Dosage: 15 MG, DAILY BEFORE BADTIME
     Route: 048
     Dates: start: 20141113
  8. TAMOXIFEN CITRATE. [Suspect]
     Active Substance: TAMOXIFEN CITRATE
     Route: 048
     Dates: start: 201205, end: 201207
  9. EMLA [Concomitant]
     Active Substance: LIDOCAINE\PRILOCAINE
     Dosage: 2.5 %-2.5% TOPICAL CREAM
     Dates: start: 20141118
  10. MULTIVITAMINE [Concomitant]
     Route: 048
     Dates: start: 20101210
  11. IMMODIUM A-D [Concomitant]
     Dosage: TAKE 1-2 TABLET, EVERY 4-6 HOURS AS NEEDED
     Route: 048
     Dates: start: 20100827

REACTIONS (5)
  - Diarrhoea [Unknown]
  - Disease progression [Unknown]
  - Thrombocytopenia [Unknown]
  - Muscle spasms [Unknown]
  - Platelet count decreased [Unknown]

NARRATIVE: CASE EVENT DATE: 201205
